FAERS Safety Report 23387136 (Version 36)
Quarter: 2025Q3

REPORT INFORMATION
  Report Type: Spontaneous
  Country: GB (occurrence: GB)
  Receive Date: 20240110
  Receipt Date: 20250804
  Transmission Date: 20251020
  Serious: Yes (Hospitalization, Other)
  Sender: NOVARTIS
  Company Number: GB-SANDOZ-SDZ2023GB053012

PATIENT
  Age: 54 Year
  Sex: Female
  Weight: 71 kg

DRUGS (205)
  1. SECUKINUMAB [Suspect]
     Active Substance: SECUKINUMAB
     Indication: Product used for unknown indication
     Route: 058
  2. SECUKINUMAB [Suspect]
     Active Substance: SECUKINUMAB
     Route: 065
  3. SECUKINUMAB [Suspect]
     Active Substance: SECUKINUMAB
     Route: 065
  4. SECUKINUMAB [Suspect]
     Active Substance: SECUKINUMAB
     Route: 058
  5. SECUKINUMAB [Suspect]
     Active Substance: SECUKINUMAB
     Route: 058
  6. SECUKINUMAB [Suspect]
     Active Substance: SECUKINUMAB
     Route: 058
  7. SECUKINUMAB [Suspect]
     Active Substance: SECUKINUMAB
     Route: 065
  8. SECUKINUMAB [Suspect]
     Active Substance: SECUKINUMAB
     Route: 065
  9. SECUKINUMAB [Suspect]
     Active Substance: SECUKINUMAB
     Route: 065
  10. SECUKINUMAB [Suspect]
     Active Substance: SECUKINUMAB
     Route: 058
  11. SECUKINUMAB [Suspect]
     Active Substance: SECUKINUMAB
     Route: 058
  12. SECUKINUMAB [Suspect]
     Active Substance: SECUKINUMAB
     Route: 058
  13. SECUKINUMAB [Suspect]
     Active Substance: SECUKINUMAB
     Route: 058
  14. SECUKINUMAB [Suspect]
     Active Substance: SECUKINUMAB
     Route: 058
  15. SECUKINUMAB [Suspect]
     Active Substance: SECUKINUMAB
     Route: 065
  16. SECUKINUMAB [Suspect]
     Active Substance: SECUKINUMAB
     Route: 058
  17. SECUKINUMAB [Suspect]
     Active Substance: SECUKINUMAB
     Route: 058
  18. SECUKINUMAB [Suspect]
     Active Substance: SECUKINUMAB
     Route: 058
  19. SECUKINUMAB [Suspect]
     Active Substance: SECUKINUMAB
     Route: 058
  20. SECUKINUMAB [Suspect]
     Active Substance: SECUKINUMAB
     Route: 065
  21. SECUKINUMAB [Suspect]
     Active Substance: SECUKINUMAB
     Route: 058
  22. SECUKINUMAB [Suspect]
     Active Substance: SECUKINUMAB
     Route: 058
  23. SECUKINUMAB [Suspect]
     Active Substance: SECUKINUMAB
     Route: 058
  24. SECUKINUMAB [Suspect]
     Active Substance: SECUKINUMAB
     Route: 058
  25. SECUKINUMAB [Suspect]
     Active Substance: SECUKINUMAB
     Route: 058
  26. SECUKINUMAB [Suspect]
     Active Substance: SECUKINUMAB
     Route: 058
  27. SECUKINUMAB [Suspect]
     Active Substance: SECUKINUMAB
     Route: 058
  28. SECUKINUMAB [Suspect]
     Active Substance: SECUKINUMAB
     Route: 058
  29. SECUKINUMAB [Suspect]
     Active Substance: SECUKINUMAB
     Route: 058
  30. SECUKINUMAB [Suspect]
     Active Substance: SECUKINUMAB
     Route: 058
  31. SECUKINUMAB [Suspect]
     Active Substance: SECUKINUMAB
     Route: 058
  32. SECUKINUMAB [Suspect]
     Active Substance: SECUKINUMAB
     Route: 058
  33. SECUKINUMAB [Suspect]
     Active Substance: SECUKINUMAB
     Route: 058
  34. SECUKINUMAB [Suspect]
     Active Substance: SECUKINUMAB
     Route: 058
  35. SECUKINUMAB [Suspect]
     Active Substance: SECUKINUMAB
     Route: 058
  36. SECUKINUMAB [Suspect]
     Active Substance: SECUKINUMAB
     Route: 058
  37. SECUKINUMAB [Suspect]
     Active Substance: SECUKINUMAB
     Route: 058
  38. SECUKINUMAB [Suspect]
     Active Substance: SECUKINUMAB
     Route: 058
  39. SECUKINUMAB [Suspect]
     Active Substance: SECUKINUMAB
     Route: 058
  40. SECUKINUMAB [Suspect]
     Active Substance: SECUKINUMAB
     Route: 058
  41. SECUKINUMAB [Suspect]
     Active Substance: SECUKINUMAB
     Route: 058
  42. SECUKINUMAB [Suspect]
     Active Substance: SECUKINUMAB
     Route: 058
  43. SECUKINUMAB [Suspect]
     Active Substance: SECUKINUMAB
     Route: 058
  44. SECUKINUMAB [Suspect]
     Active Substance: SECUKINUMAB
     Route: 058
  45. SECUKINUMAB [Suspect]
     Active Substance: SECUKINUMAB
     Route: 058
  46. SECUKINUMAB [Suspect]
     Active Substance: SECUKINUMAB
     Route: 058
  47. SECUKINUMAB [Suspect]
     Active Substance: SECUKINUMAB
     Route: 058
  48. SECUKINUMAB [Suspect]
     Active Substance: SECUKINUMAB
     Route: 058
  49. SECUKINUMAB [Suspect]
     Active Substance: SECUKINUMAB
     Route: 058
  50. LETROZOLE [Suspect]
     Active Substance: LETROZOLE
     Indication: Breast cancer
     Dosage: 2.5 MG, QD,  2.5 MILLIGRAM, QD/ 2.5 MG, QD (2.5 MG, DAILY)/ (DOSAGE1: UNIT=NOT AVAILABLE) / (CUMULAT
     Route: 048
     Dates: start: 20240221, end: 20240430
  51. LETROZOLE [Suspect]
     Active Substance: LETROZOLE
     Dosage: 25 MG, QD
     Route: 048
     Dates: start: 20240221, end: 20240430
  52. LETROZOLE [Suspect]
     Active Substance: LETROZOLE
     Dosage: 25 MG, QD (2.5 MG, QD; 2.5 MG, 1X/DAY  )
     Route: 048
     Dates: start: 20240221, end: 20240430
  53. LETROZOLE [Suspect]
     Active Substance: LETROZOLE
     Dosage: 25 MG, QD (2.5 MILLIGRAM, QD (2.5 MG, DAILY) / 2.5 MG, QD (2.5 MG, DAILY)  )
     Route: 065
     Dates: start: 20240221, end: 20240430
  54. LETROZOLE [Suspect]
     Active Substance: LETROZOLE
     Dosage: 25 MG, QD (2.5 MG, QD (2.5 MG, DAILY)/ (DOSAGE1: UNIT=NOT AVAILABLE) / (CUMULATIVE DOSE TO FIRST REA
     Route: 048
     Dates: start: 20240221, end: 20240430
  55. LETROZOLE [Suspect]
     Active Substance: LETROZOLE
     Dosage: 25 MG, QD (2.5 MG, QD (2.5 MG, DAILY)/ (DOSAGE1: UNIT=NOT AVAILABLE) / (CUMULATIVE DOSE TO FIRST REA
     Route: 048
     Dates: start: 20240221, end: 20240430
  56. LETROZOLE [Suspect]
     Active Substance: LETROZOLE
     Dosage: 25 MG, QD (2.5 MILLIGRAM, QD (1X/DAY) (ADDITIONAL INFORMATION: DOSAGE1: UNIT=NOT AVAILABLE)  )
     Route: 048
     Dates: start: 20240221, end: 20240430
  57. LETROZOLE [Suspect]
     Active Substance: LETROZOLE
     Route: 048
     Dates: start: 20240221, end: 20240430
  58. LETROZOLE [Suspect]
     Active Substance: LETROZOLE
     Dosage: 25 MG, QD (2.5 MG, QD (2.5 MG, DAILY)/ (DOSAGE1: UNIT=NOT AVAILABLE) / (CUMULATIVE DOSE TO FIRST REA
     Route: 048
     Dates: start: 20240221, end: 20240430
  59. LETROZOLE [Suspect]
     Active Substance: LETROZOLE
     Dosage: 25 MG, QD
     Route: 065
     Dates: start: 20240221, end: 20240430
  60. ADALIMUMAB [Suspect]
     Active Substance: ADALIMUMAB
     Indication: Product used for unknown indication
     Route: 058
  61. ADALIMUMAB [Suspect]
     Active Substance: ADALIMUMAB
     Route: 065
  62. ADALIMUMAB [Suspect]
     Active Substance: ADALIMUMAB
     Route: 065
  63. ADALIMUMAB [Suspect]
     Active Substance: ADALIMUMAB
     Route: 058
  64. ADALIMUMAB [Suspect]
     Active Substance: ADALIMUMAB
     Route: 058
  65. ADALIMUMAB [Suspect]
     Active Substance: ADALIMUMAB
     Route: 058
  66. ADALIMUMAB [Suspect]
     Active Substance: ADALIMUMAB
     Route: 058
  67. ADALIMUMAB [Suspect]
     Active Substance: ADALIMUMAB
     Route: 058
  68. ADALIMUMAB [Suspect]
     Active Substance: ADALIMUMAB
     Route: 058
  69. ADALIMUMAB [Suspect]
     Active Substance: ADALIMUMAB
     Route: 058
  70. ADALIMUMAB [Suspect]
     Active Substance: ADALIMUMAB
     Route: 058
  71. ADALIMUMAB [Suspect]
     Active Substance: ADALIMUMAB
     Route: 058
  72. ADALIMUMAB [Suspect]
     Active Substance: ADALIMUMAB
     Route: 058
  73. ADALIMUMAB [Suspect]
     Active Substance: ADALIMUMAB
     Route: 058
  74. ADALIMUMAB [Suspect]
     Active Substance: ADALIMUMAB
     Route: 058
  75. ADALIMUMAB [Suspect]
     Active Substance: ADALIMUMAB
     Route: 058
  76. ADALIMUMAB [Suspect]
     Active Substance: ADALIMUMAB
     Route: 058
  77. ADALIMUMAB [Suspect]
     Active Substance: ADALIMUMAB
     Route: 065
  78. ADALIMUMAB [Suspect]
     Active Substance: ADALIMUMAB
     Route: 058
  79. ADALIMUMAB [Suspect]
     Active Substance: ADALIMUMAB
     Route: 058
  80. ADALIMUMAB [Suspect]
     Active Substance: ADALIMUMAB
     Route: 058
  81. ADALIMUMAB [Suspect]
     Active Substance: ADALIMUMAB
     Route: 058
  82. ADALIMUMAB [Suspect]
     Active Substance: ADALIMUMAB
     Route: 065
  83. ADALIMUMAB [Suspect]
     Active Substance: ADALIMUMAB
     Route: 065
  84. ADALIMUMAB [Suspect]
     Active Substance: ADALIMUMAB
     Route: 065
  85. ADALIMUMAB [Suspect]
     Active Substance: ADALIMUMAB
     Route: 065
  86. ADALIMUMAB [Suspect]
     Active Substance: ADALIMUMAB
     Route: 065
  87. ADALIMUMAB [Suspect]
     Active Substance: ADALIMUMAB
     Route: 065
  88. ADALIMUMAB [Suspect]
     Active Substance: ADALIMUMAB
     Route: 058
  89. ADALIMUMAB [Suspect]
     Active Substance: ADALIMUMAB
     Route: 058
  90. ADALIMUMAB [Suspect]
     Active Substance: ADALIMUMAB
     Route: 058
  91. ADALIMUMAB [Suspect]
     Active Substance: ADALIMUMAB
     Route: 058
  92. ADALIMUMAB [Suspect]
     Active Substance: ADALIMUMAB
     Route: 058
  93. ADALIMUMAB [Suspect]
     Active Substance: ADALIMUMAB
     Route: 058
  94. ADALIMUMAB [Suspect]
     Active Substance: ADALIMUMAB
     Route: 058
  95. ADALIMUMAB [Suspect]
     Active Substance: ADALIMUMAB
     Route: 058
  96. ADALIMUMAB [Suspect]
     Active Substance: ADALIMUMAB
     Route: 058
  97. ADALIMUMAB [Suspect]
     Active Substance: ADALIMUMAB
     Route: 058
  98. ADALIMUMAB [Suspect]
     Active Substance: ADALIMUMAB
     Route: 058
  99. ADALIMUMAB [Suspect]
     Active Substance: ADALIMUMAB
     Route: 058
  100. ADALIMUMAB [Suspect]
     Active Substance: ADALIMUMAB
     Route: 058
  101. ADALIMUMAB [Suspect]
     Active Substance: ADALIMUMAB
     Route: 058
  102. ADALIMUMAB [Suspect]
     Active Substance: ADALIMUMAB
     Route: 058
  103. ADALIMUMAB [Suspect]
     Active Substance: ADALIMUMAB
     Route: 058
  104. PALBOCICLIB [Suspect]
     Active Substance: PALBOCICLIB
     Indication: Breast cancer
     Route: 048
     Dates: start: 20240221, end: 20240423
  105. PALBOCICLIB [Suspect]
     Active Substance: PALBOCICLIB
     Route: 048
     Dates: start: 20240221, end: 20240423
  106. PALBOCICLIB [Suspect]
     Active Substance: PALBOCICLIB
     Route: 048
     Dates: start: 20240221, end: 20240423
  107. PALBOCICLIB [Suspect]
     Active Substance: PALBOCICLIB
     Route: 048
     Dates: start: 20240221, end: 20240423
  108. PALBOCICLIB [Suspect]
     Active Substance: PALBOCICLIB
     Route: 048
     Dates: start: 20240221, end: 20240423
  109. EDOXABAN TOSYLATE [Concomitant]
     Active Substance: EDOXABAN TOSYLATE
     Indication: Product used for unknown indication
     Route: 048
     Dates: start: 202401
  110. EDOXABAN TOSYLATE [Concomitant]
     Active Substance: EDOXABAN TOSYLATE
     Route: 065
     Dates: start: 202401
  111. EDOXABAN TOSYLATE [Concomitant]
     Active Substance: EDOXABAN TOSYLATE
     Route: 065
     Dates: start: 202401
  112. EDOXABAN TOSYLATE [Concomitant]
     Active Substance: EDOXABAN TOSYLATE
     Route: 048
     Dates: start: 202401, end: 202401
  113. EDOXABAN TOSYLATE [Concomitant]
     Active Substance: EDOXABAN TOSYLATE
     Route: 065
     Dates: start: 202401
  114. EDOXABAN TOSYLATE [Concomitant]
     Active Substance: EDOXABAN TOSYLATE
     Route: 065
     Dates: start: 202401, end: 202401
  115. EDOXABAN TOSYLATE [Concomitant]
     Active Substance: EDOXABAN TOSYLATE
     Route: 065
     Dates: start: 202401
  116. ADALIMUMAB [Suspect]
     Active Substance: ADALIMUMAB
     Indication: Product used for unknown indication
     Route: 065
  117. ADALIMUMAB [Suspect]
     Active Substance: ADALIMUMAB
     Indication: Product used for unknown indication
     Route: 065
  118. ADALIMUMAB [Suspect]
     Active Substance: ADALIMUMAB
     Route: 065
  119. ADALIMUMAB [Suspect]
     Active Substance: ADALIMUMAB
     Route: 065
  120. ADALIMUMAB [Suspect]
     Active Substance: ADALIMUMAB
     Route: 065
  121. ADALIMUMAB [Suspect]
     Active Substance: ADALIMUMAB
     Route: 065
  122. ADALIMUMAB [Suspect]
     Active Substance: ADALIMUMAB
     Route: 065
  123. ADALIMUMAB [Suspect]
     Active Substance: ADALIMUMAB
     Route: 065
  124. ADALIMUMAB [Suspect]
     Active Substance: ADALIMUMAB
     Route: 065
  125. ADALIMUMAB [Suspect]
     Active Substance: ADALIMUMAB
     Route: 065
  126. ADALIMUMAB [Suspect]
     Active Substance: ADALIMUMAB
     Route: 065
  127. ADALIMUMAB [Suspect]
     Active Substance: ADALIMUMAB
     Route: 058
  128. ADALIMUMAB [Suspect]
     Active Substance: ADALIMUMAB
     Route: 058
  129. ADALIMUMAB [Suspect]
     Active Substance: ADALIMUMAB
     Route: 058
  130. ADALIMUMAB [Suspect]
     Active Substance: ADALIMUMAB
     Route: 058
  131. ADALIMUMAB [Suspect]
     Active Substance: ADALIMUMAB
     Route: 058
  132. ADALIMUMAB [Suspect]
     Active Substance: ADALIMUMAB
     Route: 058
  133. ADALIMUMAB [Suspect]
     Active Substance: ADALIMUMAB
     Route: 058
  134. ADALIMUMAB [Suspect]
     Active Substance: ADALIMUMAB
     Route: 058
  135. ADALIMUMAB [Suspect]
     Active Substance: ADALIMUMAB
     Route: 058
  136. ADALIMUMAB [Suspect]
     Active Substance: ADALIMUMAB
     Route: 058
  137. ADALIMUMAB [Suspect]
     Active Substance: ADALIMUMAB
     Route: 058
  138. ADALIMUMAB [Suspect]
     Active Substance: ADALIMUMAB
     Route: 058
  139. ADALIMUMAB [Suspect]
     Active Substance: ADALIMUMAB
     Route: 058
  140. ADALIMUMAB [Suspect]
     Active Substance: ADALIMUMAB
     Route: 058
  141. ADALIMUMAB [Suspect]
     Active Substance: ADALIMUMAB
     Route: 058
  142. ADALIMUMAB [Suspect]
     Active Substance: ADALIMUMAB
     Route: 058
  143. ADALIMUMAB [Suspect]
     Active Substance: ADALIMUMAB
     Route: 058
  144. ADALIMUMAB [Suspect]
     Active Substance: ADALIMUMAB
     Route: 058
  145. ADALIMUMAB [Suspect]
     Active Substance: ADALIMUMAB
     Route: 058
  146. ADALIMUMAB [Suspect]
     Active Substance: ADALIMUMAB
     Route: 058
  147. ADALIMUMAB [Suspect]
     Active Substance: ADALIMUMAB
     Route: 058
  148. ADALIMUMAB [Suspect]
     Active Substance: ADALIMUMAB
     Route: 058
  149. ADALIMUMAB [Suspect]
     Active Substance: ADALIMUMAB
     Route: 058
  150. ADALIMUMAB [Suspect]
     Active Substance: ADALIMUMAB
     Route: 058
  151. ADALIMUMAB [Suspect]
     Active Substance: ADALIMUMAB
     Route: 058
  152. ADALIMUMAB [Suspect]
     Active Substance: ADALIMUMAB
     Route: 058
  153. ADALIMUMAB [Suspect]
     Active Substance: ADALIMUMAB
     Route: 058
  154. ADALIMUMAB [Suspect]
     Active Substance: ADALIMUMAB
     Route: 058
  155. ADALIMUMAB [Suspect]
     Active Substance: ADALIMUMAB
     Route: 058
  156. LETROZOLE [Suspect]
     Active Substance: LETROZOLE
     Indication: Breast cancer
     Dosage: 2.5 MG, QD; 2.5 MG, 1X/DAY
     Route: 065
     Dates: start: 20240221, end: 20240430
  157. LETROZOLE [Suspect]
     Active Substance: LETROZOLE
     Indication: Breast cancer female
     Dosage: 2.5 MILLIGRAM, QD (2.5 MG, DAILY)
     Route: 048
     Dates: start: 20240221, end: 20240430
  158. LETROZOLE [Suspect]
     Active Substance: LETROZOLE
     Dosage: 2.5 MILLIGRAM, QD/ 2.5 MG, QD (2.5 MG,  DAILY)/ (DOSAGE1: UNIT=NOT AVAILABLE) /  (CUMULATIVE DOSE TO
     Route: 048
     Dates: start: 20240221, end: 20240430
  159. LETROZOLE [Suspect]
     Active Substance: LETROZOLE
     Dosage: 2.5 MG, QD (DAILY)
     Route: 048
     Dates: start: 20240221, end: 20240430
  160. SECUKINUMAB [Suspect]
     Active Substance: SECUKINUMAB
     Indication: Product used for unknown indication
     Route: 058
  161. SECUKINUMAB [Suspect]
     Active Substance: SECUKINUMAB
     Route: 058
  162. SECUKINUMAB [Suspect]
     Active Substance: SECUKINUMAB
     Route: 058
  163. SECUKINUMAB [Suspect]
     Active Substance: SECUKINUMAB
     Route: 058
  164. SECUKINUMAB [Suspect]
     Active Substance: SECUKINUMAB
     Route: 065
  165. SECUKINUMAB [Suspect]
     Active Substance: SECUKINUMAB
     Route: 058
  166. SECUKINUMAB [Suspect]
     Active Substance: SECUKINUMAB
     Route: 058
  167. SECUKINUMAB [Suspect]
     Active Substance: SECUKINUMAB
     Route: 058
  168. SECUKINUMAB [Suspect]
     Active Substance: SECUKINUMAB
     Route: 065
  169. SECUKINUMAB [Suspect]
     Active Substance: SECUKINUMAB
     Route: 065
  170. SECUKINUMAB [Suspect]
     Active Substance: SECUKINUMAB
     Route: 065
  171. SECUKINUMAB [Suspect]
     Active Substance: SECUKINUMAB
     Route: 058
  172. SECUKINUMAB [Suspect]
     Active Substance: SECUKINUMAB
     Route: 058
  173. SECUKINUMAB [Suspect]
     Active Substance: SECUKINUMAB
     Route: 058
  174. SECUKINUMAB [Suspect]
     Active Substance: SECUKINUMAB
     Route: 065
  175. SECUKINUMAB [Suspect]
     Active Substance: SECUKINUMAB
     Route: 065
  176. SECUKINUMAB [Suspect]
     Active Substance: SECUKINUMAB
     Route: 065
  177. SECUKINUMAB [Suspect]
     Active Substance: SECUKINUMAB
     Route: 065
  178. SECUKINUMAB [Suspect]
     Active Substance: SECUKINUMAB
     Route: 058
  179. SECUKINUMAB [Suspect]
     Active Substance: SECUKINUMAB
     Route: 065
  180. SECUKINUMAB [Suspect]
     Active Substance: SECUKINUMAB
     Route: 065
  181. SECUKINUMAB [Suspect]
     Active Substance: SECUKINUMAB
     Route: 058
  182. SECUKINUMAB [Suspect]
     Active Substance: SECUKINUMAB
     Route: 058
  183. SECUKINUMAB [Suspect]
     Active Substance: SECUKINUMAB
     Route: 058
  184. SECUKINUMAB [Suspect]
     Active Substance: SECUKINUMAB
     Route: 058
  185. SECUKINUMAB [Suspect]
     Active Substance: SECUKINUMAB
     Route: 058
  186. SECUKINUMAB [Suspect]
     Active Substance: SECUKINUMAB
     Route: 058
  187. SECUKINUMAB [Suspect]
     Active Substance: SECUKINUMAB
     Route: 058
  188. SECUKINUMAB [Suspect]
     Active Substance: SECUKINUMAB
     Route: 058
  189. SECUKINUMAB [Suspect]
     Active Substance: SECUKINUMAB
     Route: 058
  190. SECUKINUMAB [Suspect]
     Active Substance: SECUKINUMAB
     Route: 058
  191. SECUKINUMAB [Suspect]
     Active Substance: SECUKINUMAB
     Route: 058
  192. SECUKINUMAB [Suspect]
     Active Substance: SECUKINUMAB
     Route: 058
  193. SECUKINUMAB [Suspect]
     Active Substance: SECUKINUMAB
     Route: 058
  194. SECUKINUMAB [Suspect]
     Active Substance: SECUKINUMAB
     Route: 058
  195. SECUKINUMAB [Suspect]
     Active Substance: SECUKINUMAB
     Route: 065
  196. SECUKINUMAB [Suspect]
     Active Substance: SECUKINUMAB
     Route: 065
  197. SECUKINUMAB [Suspect]
     Active Substance: SECUKINUMAB
     Route: 065
  198. SECUKINUMAB [Suspect]
     Active Substance: SECUKINUMAB
     Route: 065
  199. SECUKINUMAB [Suspect]
     Active Substance: SECUKINUMAB
     Route: 065
  200. SECUKINUMAB [Suspect]
     Active Substance: SECUKINUMAB
     Route: 065
  201. SECUKINUMAB [Suspect]
     Active Substance: SECUKINUMAB
     Route: 065
  202. SECUKINUMAB [Suspect]
     Active Substance: SECUKINUMAB
     Route: 065
  203. SECUKINUMAB [Suspect]
     Active Substance: SECUKINUMAB
     Route: 065
  204. SECUKINUMAB [Suspect]
     Active Substance: SECUKINUMAB
     Route: 065
  205. SECUKINUMAB [Suspect]
     Active Substance: SECUKINUMAB
     Route: 065

REACTIONS (5)
  - Anaemia [Recovered/Resolved]
  - Systemic lupus erythematosus [Unknown]
  - White blood cell count decreased [Unknown]
  - Neoplasm progression [Unknown]
  - Metastases to bone [Unknown]

NARRATIVE: CASE EVENT DATE: 20240330
